FAERS Safety Report 10312019 (Version 3)
Quarter: 2014Q3

REPORT INFORMATION
  Report Type: Spontaneous
  Country: DE (occurrence: None)
  Receive Date: 20140714
  Receipt Date: 20140815
  Transmission Date: 20150326
  Serious: Yes (Disabling)
  Sender: FDA-Public Use
  Company Number: 2014DE003406

PATIENT
  Age: 75 Year
  Sex: Female
  Weight: 65 kg

DRUGS (23)
  1. HYDROCHLOROTHIAZID (HYDROCHLOROTHIAZID) [Concomitant]
  2. CERTOPARIN (CERTOPARIN SODIUM) [Concomitant]
  3. TORASEMID (TORASEMIDE) [Concomitant]
  4. CIPROFLOXACIN (CIPROFLOXACIN) [Concomitant]
     Active Substance: CIPROFLOXACIN
  5. VOLTAREN [Concomitant]
     Active Substance: DICLOFENAC SODIUM
  6. SPIRONOLACTONE (SPIRONOLACTONE) [Concomitant]
     Active Substance: SPIRONOLACTONE
  7. OMEPRAZOL (OMEPRAZOLE) [Concomitant]
  8. CLOPIDOGREL [Concomitant]
     Active Substance: CLOPIDOGREL BISULFATE
  9. DICLOFENAC (DICLOFENAC SODIUM) [Concomitant]
  10. FENTANYL (FENTANYL) [Concomitant]
     Active Substance: FENTANYL
  11. PONATINIB (AP24534) TABLET [Suspect]
     Active Substance: PONATINIB
     Indication: CHRONIC MYELOID LEUKAEMIA
     Route: 048
     Dates: start: 20110502, end: 20140316
  12. RAMIPRIL (RAMIPRIL) [Concomitant]
     Active Substance: RAMIPRIL
  13. HEPARIN [Concomitant]
     Active Substance: HEPARIN SODIUM
  14. PANTOPRAZOLE (PANTOPRAZOLE) [Concomitant]
     Active Substance: PANTOPRAZOLE SODIUM
  15. BRAUNOVIDON (POVIDONE-IODINE) [Concomitant]
  16. ALLOPURINOL (ALLOPURINOL) [Concomitant]
     Active Substance: ALLOPURINOL
  17. IBUPROFEN (IBUPROFEN) [Concomitant]
     Active Substance: IBUPROFEN
  18. BISOPROLOL (BISOPROLOL) [Concomitant]
     Active Substance: BISOPROLOL
  19. FUROSEMID (FUROSEMID) [Concomitant]
  20. LACTULOSE (LACTULOSE) [Concomitant]
     Active Substance: LACTULOSE
  21. OCTENISEPT (OCTENIDINE HYDROCHLORIDE, PHENOXYETHANOL) [Concomitant]
  22. KALINOR-BRAUSETABLETTEN (POTASSIUM CARBONATE, POTASSIUM CITRATE) [Concomitant]
  23. ASPIRIN. [Concomitant]
     Active Substance: ASPIRIN

REACTIONS (6)
  - Vascular dementia [None]
  - Disorientation [None]
  - Aggression [None]
  - Agitation [None]
  - Somatoform disorder [None]
  - Dementia [None]

NARRATIVE: CASE EVENT DATE: 20140325
